FAERS Safety Report 10710473 (Version 4)
Quarter: 2015Q1

REPORT INFORMATION
  Report Type: Report from Study
  Country: ES (occurrence: ES)
  Receive Date: 20150114
  Receipt Date: 20150218
  Transmission Date: 20150721
  Serious: Yes (Other)
  Sender: FDA-Public Use
  Company Number: ES-SA-2015SA003844

PATIENT
  Age: 83 Year
  Sex: Male

DRUGS (9)
  1. LANTUS SOLOSTAR [Suspect]
     Active Substance: INSULIN GLARGINE
     Indication: TYPE 2 DIABETES MELLITUS
     Dosage: START DATE: 2 YEARS
     Route: 058
     Dates: start: 2013
  2. SOLOSTAR [Concomitant]
     Active Substance: DEVICE
     Dates: start: 2013
  3. RAMIPRIL. [Concomitant]
     Active Substance: RAMIPRIL
  4. PRANDIN [Concomitant]
     Active Substance: REPAGLINIDE
     Indication: TYPE 2 DIABETES MELLITUS
     Dosage: DOSE: 1(UNIT NOT SPECIFIED)
     Route: 048
  5. BISOPROLOL [Concomitant]
     Active Substance: BISOPROLOL
  6. SEGURIL [Concomitant]
     Active Substance: FUROSEMIDE
     Dosage: 2-2-0
  7. LORAZEPAM. [Concomitant]
     Active Substance: LORAZEPAM
  8. ATORVASTATIN [Concomitant]
     Active Substance: ATORVASTATIN
     Dosage: 0-0-1
  9. ADIRO [Concomitant]
     Active Substance: ASPIRIN
     Dosage: 0-1-0

REACTIONS (9)
  - Pain [Not Recovered/Not Resolved]
  - Flushing [Recovered/Resolved]
  - Hyperglycaemia [Not Recovered/Not Resolved]
  - Inflammation [Recovered/Resolved]
  - Swelling [Recovered/Resolved]
  - Abasia [Recovered/Resolved]
  - Localised infection [Unknown]
  - Erythema [Recovered/Resolved]
  - Hyperuricaemia [Unknown]

NARRATIVE: CASE EVENT DATE: 20150109
